FAERS Safety Report 8082497-1 (Version None)
Quarter: 2012Q1

REPORT INFORMATION
  Report Type: 
  Country: None (occurrence: None)
  Receive Date: 20120127
  Receipt Date: 20110221
  Transmission Date: 20120608
  Serious: No
  Sender: FDA-Public Use
  Company Number: US-ABBOTT-11P-163-0706634-00

PATIENT
  Age: 69 Year
  Sex: Female

DRUGS (4)
  1. ATENOLOL [Concomitant]
     Indication: HYPERTENSION
  2. HUMIRA [Suspect]
     Indication: RHEUMATOID ARTHRITIS
     Dates: start: 20040101
  3. RITIDINE [Concomitant]
     Indication: GASTROOESOPHAGEAL REFLUX DISEASE
     Dosage: AS NEEDED
  4. PREDNISONE TAB [Concomitant]
     Indication: RHEUMATOID ARTHRITIS

REACTIONS (3)
  - INJECTION SITE PAIN [None]
  - INJECTION SITE NODULE [None]
  - DEVICE MALFUNCTION [None]
